FAERS Safety Report 15817757 (Version 1)
Quarter: 2019Q1

REPORT INFORMATION
  Report Type: Spontaneous
  Country: ES (occurrence: ES)
  Receive Date: 20190113
  Receipt Date: 20190113
  Transmission Date: 20190417
  Serious: Yes (Hospitalization)
  Sender: FDA-Public Use
  Company Number: ES-TEVA-2019-ES-998294

PATIENT
  Age: 65 Year
  Sex: Female

DRUGS (9)
  1. NOLOTIL 575 MG CAPSULAS DURAS, 10 C?PSULAS [Concomitant]
     Active Substance: METAMIZOLE MAGNESIUM
     Dosage: DEMANDA
     Route: 048
     Dates: start: 20170421
  2. DIAZEPAM (730A) [Concomitant]
     Active Substance: DIAZEPAM
     Dosage: 0-0-1
     Dates: start: 20161024
  3. OMEPRAZOL  20 MG CAPSULAS DURAS GASTRORRESISTENTES EFG [Concomitant]
     Dosage: 1-0-0
     Route: 048
     Dates: start: 20130103
  4. BETAHISTINA (489A) [Concomitant]
     Dosage: 1-0-1
     Route: 048
     Dates: start: 20181119
  5. INDAPAMIDA (1776A) [Concomitant]
     Active Substance: INDAPAMIDE
     Dosage: 1-0-0
     Route: 048
     Dates: start: 20170802
  6. ENALAPRIL (2142A) [Suspect]
     Active Substance: ENALAPRIL
     Indication: HYPERTENSION
     Dosage: 20 MILLIGRAM DAILY;
     Route: 048
     Dates: start: 20170803, end: 20181210
  7. TRAMADOL PARACETAMOL 37,5 MG/325 MG COMPRIMIDOS RECUBIERTOS CON PELICU [Concomitant]
     Dosage: DEMANDA
     Route: 048
     Dates: start: 20180911
  8. FLATORIL 500 MICROGRAMOS/200 MG CAPSULAS DURAS , 45 C?PSULAS [Concomitant]
     Dosage: DEMANDA
     Route: 048
     Dates: start: 20170207
  9. SIMVASTATINA 40 MG COMPRIMIDOS RECUBIERTOS CON PELICULA EFG , 28 COMPR [Concomitant]
     Dosage: 0-0-1
     Route: 048
     Dates: start: 20171102

REACTIONS (2)
  - Angioedema [Recovering/Resolving]
  - Palatal oedema [Recovered/Resolved]

NARRATIVE: CASE EVENT DATE: 20181208
